FAERS Safety Report 6175427-0 (Version None)
Quarter: 2009Q2

REPORT INFORMATION
  Report Type: 
  Country: None (occurrence: None)
  Receive Date: 20090429
  Receipt Date: 20090414
  Transmission Date: 20091009
  Serious: Yes (Other)
  Sender: FDA-Public Use
  Company Number: PHEH2009US03659

PATIENT
  Sex: Female

DRUGS (1)
  1. VISUDYNE [Suspect]
     Dates: start: 20080101

REACTIONS (2)
  - DRUG INEFFECTIVE [None]
  - EPISTAXIS [None]
